FAERS Safety Report 6928323-2 (Version None)
Quarter: 2010Q3

REPORT INFORMATION
  Report Type: 
  Country: None (occurrence: None)
  Receive Date: 20100817
  Receipt Date: 20100811
  Transmission Date: 20110219
  Serious: Yes (Other)
  Sender: FDA-Public Use
  Company Number: FR-ROCHE-720889

PATIENT
  Sex: Male
  Weight: 3.6 kg

DRUGS (2)
  1. TAMIFLU [Suspect]
     Route: 064
     Dates: start: 20091214, end: 20091224
  2. AMOXICILLIN [Suspect]
     Indication: URINARY TRACT INFECTION
     Dosage: DRUG NAME REPORTED AS ^AMOXICILLINE BASE^
     Route: 064
     Dates: start: 20091125

REACTIONS (1)
  - EAR MALFORMATION [None]
